FAERS Safety Report 14416894 (Version 1)
Quarter: 2018Q1

REPORT INFORMATION
  Report Type: Spontaneous
  Country: US (occurrence: US)
  Receive Date: 20180122
  Receipt Date: 20180122
  Transmission Date: 20180509
  Serious: Yes (Other)
  Sender: FDA-Public Use
  Company Number: US-PFIZER INC-2018022185

PATIENT
  Age: 62 Year
  Sex: Female
  Weight: 117.9 kg

DRUGS (5)
  1. CYCLOBENZAPRINE. [Concomitant]
     Active Substance: CYCLOBENZAPRINE
     Indication: PAIN
     Dosage: 10MG AT BEDTIME
     Route: 048
  2. XANAX [Concomitant]
     Active Substance: ALPRAZOLAM
     Dosage: 1MG AT BEDTIME
     Route: 048
  3. NORPRAMIN [Interacting]
     Active Substance: DESIPRAMINE HYDROCHLORIDE
     Indication: DEPRESSION
  4. VERAPAMIL HCL [Suspect]
     Active Substance: VERAPAMIL HYDROCHLORIDE
     Indication: BLOOD PRESSURE ABNORMAL
     Dosage: 80 MG, 1X/DAY
     Route: 048
  5. NORPRAMIN [Interacting]
     Active Substance: DESIPRAMINE HYDROCHLORIDE
     Indication: PAIN
     Dosage: 200 MG, DAILY
     Route: 048

REACTIONS (3)
  - Drug interaction [Unknown]
  - Cardiac flutter [Recovering/Resolving]
  - Condition aggravated [Recovering/Resolving]
